FAERS Safety Report 17561935 (Version 1)
Quarter: 2020Q1

REPORT INFORMATION
  Report Type: Spontaneous
  Country: DE (occurrence: DE)
  Receive Date: 20200319
  Receipt Date: 20200319
  Transmission Date: 20200409
  Serious: Yes (Other)
  Sender: FDA-Public Use
  Company Number: DE-TEVA-2020-DE-1205184

PATIENT
  Age: 72 Year
  Sex: Female
  Weight: 57 kg

DRUGS (4)
  1. ATORVASTATIN ABZ 40MG FILMTABLETTEN [Suspect]
     Active Substance: ATORVASTATIN
     Dosage: 40 MILLIGRAM DAILY;
     Route: 048
     Dates: start: 20160503
  2. TELMISARTAN ABZ 60MG TABLETTEN [Concomitant]
     Dosage: 60 MILLIGRAM DAILY;
     Dates: start: 20030504
  3. BISOPROLOL COMP. ABZ 10 MG/25 MG FILMTABLETTEN [Concomitant]
     Dosage: 2MG DAILY
     Dates: start: 20180201
  4. ASPIRIN. [Concomitant]
     Active Substance: ASPIRIN
     Dosage: 100 MILLIGRAM DAILY;
     Dates: start: 20160503

REACTIONS (7)
  - Hypotension [Unknown]
  - Vision blurred [Unknown]
  - Diabetes mellitus [Unknown]
  - Asthenia [Unknown]
  - Cough [Unknown]
  - Fatigue [Unknown]
  - Low density lipoprotein [Unknown]

NARRATIVE: CASE EVENT DATE: 20170404
